FAERS Safety Report 25887378 (Version 4)
Quarter: 2025Q4

REPORT INFORMATION
  Report Type: Spontaneous
  Country: US (occurrence: US)
  Receive Date: 20251006
  Receipt Date: 20251028
  Transmission Date: 20260117
  Serious: Yes (Other)
  Sender: DERMARITE INDUSTRIES
  Company Number: US-DERMARITE INDUSTRIES, LLC.-2025-DER-US000049

PATIENT

DRUGS (1)
  1. ZINC ACETATE [Suspect]
     Active Substance: ZINC ACETATE
     Indication: Limb injury
     Dosage: UNK
     Route: 061
     Dates: start: 2025, end: 2025

REACTIONS (2)
  - Wound infection staphylococcal [Not Recovered/Not Resolved]
  - Wound secretion [Not Recovered/Not Resolved]

NARRATIVE: CASE EVENT DATE: 20250101
